FAERS Safety Report 23489103 (Version 1)
Quarter: 2024Q1

REPORT INFORMATION
  Report Type: Spontaneous
  Country: US (occurrence: US)
  Receive Date: 20240206
  Receipt Date: 20240206
  Transmission Date: 20240410
  Serious: No
  Sender: FDA-Public Use
  Company Number: US-GILEAD-2024-0661141

PATIENT
  Sex: Male

DRUGS (2)
  1. TECARTUS [Suspect]
     Active Substance: BREXUCABTAGENE AUTOLEUCEL
     Indication: Acute lymphocytic leukaemia
     Dosage: 1ST INFUSION
     Route: 042
     Dates: start: 20231106, end: 20231106
  2. TECARTUS [Suspect]
     Active Substance: BREXUCABTAGENE AUTOLEUCEL
     Dosage: 2ND INFUSION
     Route: 042
     Dates: start: 20240130, end: 20240130

REACTIONS (1)
  - Agitation [Not Recovered/Not Resolved]
